FAERS Safety Report 4388207-3 (Version None)
Quarter: 2004Q2

REPORT INFORMATION
  Report Type: 
  Country: None (occurrence: None)
  Receive Date: 20040625
  Receipt Date: 20040612
  Transmission Date: 20050107
  Serious: Yes (Other)
  Sender: FDA-Public Use
  Company Number: 2004024140

PATIENT
  Age: 83 Year
  Sex: Female
  Weight: 72.5755 kg

DRUGS (13)
  1. DILANTIN [Suspect]
     Indication: CONVULSION
     Dates: end: 20011101
  2. NEURONTIN [Suspect]
     Indication: MUSCLE SPASMS
     Dosage: 2400 MG (800 MG, 3 IN 1 D)
     Dates: start: 20020101
  3. METFORMIN HCL [Concomitant]
  4. PIOGLITAZONE HCL [Concomitant]
  5. CELECOXIB (CELECOXIB) [Concomitant]
  6. TOLTERODINE L-TARTRATE (TOLTERODINE L-TARTRATE) [Concomitant]
  7. CHONDROITIN SULFATE (CHONDROITIN SULFATE) [Concomitant]
  8. GLUCOSAMINE (GLUCOSAMINE) [Concomitant]
  9. MULTIVITAMINS (ASCORBIC ACID/ERGOCALCIFEROL/FOLIC ACID/NICOTINAMIDE/PA [Concomitant]
  10. TOCOPHEROL CONCENTRATE CAP [Concomitant]
  11. CALCIUM WITH VITAMIN D (CALCIUM PHOSPHATE, CALCIUM SODIUM LACATTE, ERG [Concomitant]
  12. TAMOXIFEN CITRATE [Concomitant]
  13. PHENOBARBITAL TAB [Suspect]
     Indication: CONVULSION

REACTIONS (10)
  - AURA [None]
  - BODY HEIGHT DECREASED [None]
  - BREAST CANCER [None]
  - DRUG INEFFECTIVE [None]
  - DYSPNOEA [None]
  - FATIGUE [None]
  - MUSCLE SPASMS [None]
  - POST PROCEDURAL COMPLICATION [None]
  - RADIATION FIBROSIS - LUNG [None]
  - SOMNOLENCE [None]
